FAERS Safety Report 9914436 (Version 1)
Quarter: 2014Q1

REPORT INFORMATION
  Report Type: Spontaneous
  Country: US (occurrence: None)
  Receive Date: 20140219
  Receipt Date: 20140219
  Transmission Date: 20141002
  Serious: Yes (Other)
  Sender: FDA-Public Use
  Company Number: None

PATIENT
  Age: 58 Year
  Sex: Female
  Weight: 49.9 kg

DRUGS (1)
  1. AVELOX 400 MG BAYER [Suspect]
     Indication: SINUSITIS BACTERIAL
     Route: 048

REACTIONS (3)
  - Palpitations [None]
  - Tremor [None]
  - Insomnia [None]
